FAERS Safety Report 9183144 (Version 2)
Quarter: 2013Q2

REPORT INFORMATION
  Report Type: Spontaneous
  Country: US (occurrence: US)
  Receive Date: 20121030
  Receipt Date: 20130523
  Transmission Date: 20140414
  Serious: Yes (Death, Hospitalization, Other)
  Sender: FDA-Public Use
  Company Number: US-JNJFOC-20121014280

PATIENT
  Sex: 0

DRUGS (10)
  1. INFLIXIMAB, RECOMBINANT [Suspect]
     Indication: RHEUMATOID ARTHRITIS
     Route: 042
  2. ESTROGEN [Concomitant]
     Route: 065
  3. LISINOPRIL [Concomitant]
     Route: 065
  4. AMLODIPINE [Concomitant]
     Route: 065
  5. BENIDIPINE [Concomitant]
     Route: 065
  6. OLMESARTAN [Concomitant]
     Route: 065
  7. SIMVASTATIN [Concomitant]
     Route: 065
  8. ACE INHIBITORS [Concomitant]
     Route: 065
  9. NON STEROIDAL ANTI-INFLAMMATORY DRUGS [Concomitant]
     Route: 065
  10. ALL OTHER THERAPEUTICS [Concomitant]
     Route: 065

REACTIONS (1)
  - Colitis ischaemic [Fatal]
